FAERS Safety Report 4537449-2 (Version None)
Quarter: 2005Q1

REPORT INFORMATION
  Report Type: 
  Country: None (occurrence: None)
  Receive Date: 20041216
  Receipt Date: 20031215
  Transmission Date: 20050727
  Serious: Yes (Other)
  Sender: FDA-Public Use
  Company Number: HQWYE645816DEC03

PATIENT
  Sex: Female
  Weight: 59.02 kg

DRUGS (6)
  1. EFFEXOR XR [Suspect]
     Indication: MAJOR DEPRESSION
     Dosage: DOSE RANGED BETWEEN 225-375 MG - ORAL
     Route: 048
     Dates: end: 20031001
  2. EFFEXOR XR [Suspect]
     Indication: MAJOR DEPRESSION
     Dosage: DOSE RANGED BETWEEN 225-375 MG - ORAL
     Route: 048
     Dates: start: 20031001
  3. XANAX [Concomitant]
  4. OXYCONTIN [Concomitant]
  5. AMBIEN [Concomitant]
  6. ZOLOFT [Concomitant]

REACTIONS (2)
  - ALANINE AMINOTRANSFERASE INCREASED [None]
  - HEPATITIS [None]
